FAERS Safety Report 5324949-0 (Version None)
Quarter: 2007Q2

REPORT INFORMATION
  Report Type: 
  Country: None (occurrence: None)
  Receive Date: 20070510
  Receipt Date: 20070510
  Transmission Date: 20071010
  Serious: Yes (Other)
  Sender: FDA-Public Use
  Company Number: None

PATIENT
  Age: 79 Year
  Sex: Male
  Weight: 53 kg

DRUGS (9)
  1. AVELOX [Suspect]
     Indication: CHRONIC OBSTRUCTIVE PULMONARY DISEASE
     Dosage: 400 MG ONCE IV BOLUS
     Route: 040
     Dates: start: 20061230, end: 20061230
  2. AVELOX [Suspect]
     Indication: LOWER RESPIRATORY TRACT INFECTION
     Dosage: 400 MG ONCE IV BOLUS
     Route: 040
     Dates: start: 20061230, end: 20061230
  3. ALBUTEROL AEROSOLS PREDNISONE [Concomitant]
  4. ESOMEPRAZOLE MAGNESIUM [Concomitant]
  5. FLUTICASONE/SALMETEROL INHALER [Concomitant]
  6. MOMETASONE NASAL [Concomitant]
  7. TIOTROPIUM [Concomitant]
  8. BENZONATATE [Concomitant]
  9. PROPOXYPHENE NAPSYLATE W/ ACETAMINOPHEN [Concomitant]

REACTIONS (3)
  - BLOOD PRESSURE DECREASED [None]
  - HYPOVOLAEMIA [None]
  - INFUSION RELATED REACTION [None]
